FAERS Safety Report 8156391-1 (Version None)
Quarter: 2012Q1

REPORT INFORMATION
  Report Type: 
  Country: None (occurrence: None)
  Receive Date: 20120103
  Receipt Date: 20111011
  Transmission Date: 20120608
  Serious: No
  Sender: FDA-Public Use
  Company Number: AE-2011-002078

PATIENT
  Age: 56 Year
  Sex: Female
  Weight: 88.4514 kg

DRUGS (5)
  1. INCIVEK [Suspect]
     Dosage: 2250 MG (750 MG, 1 IN 8 HR), ORAL
     Route: 048
     Dates: start: 20111002
  2. NEXIUM [Concomitant]
  3. PERCOCET [Concomitant]
  4. PEGINTERFERON (PEG-INTERFERON ALFA-2A) [Concomitant]
  5. RIBAVIRIN [Concomitant]

REACTIONS (6)
  - DEPRESSED MOOD [None]
  - ANTITHROMBIN III DECREASED [None]
  - SWELLING FACE [None]
  - FATIGUE [None]
  - VISUAL IMPAIRMENT [None]
  - RASH [None]
